FAERS Safety Report 23712228 (Version 1)
Quarter: 2024Q2

REPORT INFORMATION
  Report Type: Spontaneous
  Country: US (occurrence: None)
  Receive Date: 20240404
  Receipt Date: 20240404
  Transmission Date: 20240716
  Serious: No
  Sender: FDA-Public Use
  Company Number: None

PATIENT
  Age: 73 Year
  Sex: Female
  Weight: 64.35 kg

DRUGS (1)
  1. FLUOROURACIL [Suspect]
     Active Substance: FLUOROURACIL
     Indication: Anal cancer
     Dates: start: 20140609

REACTIONS (14)
  - Diarrhoea [None]
  - Toxicity to various agents [None]
  - Dehydration [None]
  - Movement disorder [None]
  - Asthenia [None]
  - Dihydropyrimidine dehydrogenase deficiency [None]
  - Manufacturing laboratory analytical testing issue [None]
  - White blood cell count decreased [None]
  - Multi-organ disorder [None]
  - Pneumonia [None]
  - Mouth haemorrhage [None]
  - Medical induction of coma [None]
  - Cardiac arrest [None]
  - Prescribed overdose [None]

NARRATIVE: CASE EVENT DATE: 20140702
